FAERS Safety Report 5593980-2 (Version None)
Quarter: 2008Q1

REPORT INFORMATION
  Report Type: 
  Country: None (occurrence: None)
  Receive Date: 20080114
  Receipt Date: 20071228
  Transmission Date: 20080703
  Serious: Yes (Life-Threatening, Hospitalization)
  Sender: FDA-Public Use
  Company Number: 2007JP005627

PATIENT
  Age: 24 Year
  Sex: Male

DRUGS (5)
  1. PROGRAF [Suspect]
     Indication: RENAL TRANSPLANT
     Dosage: BID, ORAL
     Route: 048
     Dates: start: 20050601, end: 20060901
  2. PREDNISOLONE [Suspect]
     Indication: RENAL TRANSPLANT
     Dates: start: 20050602, end: 20060901
  3. CELLCEPT [Suspect]
     Indication: RENAL TRANSPLANT
     Dosage: BID, ORAL
     Route: 048
     Dates: start: 20050608, end: 20060901
  4. ETOPOSIDE [Concomitant]
  5. DECADRON [Concomitant]

REACTIONS (3)
  - HISTIOCYTOSIS HAEMATOPHAGIC [None]
  - KAPOSI'S VARICELLIFORM ERUPTION [None]
  - LYMPHOMA [None]
